FAERS Safety Report 10179843 (Version 2)
Quarter: 2014Q4

REPORT INFORMATION
  Report Type: Spontaneous
  Country: IT (occurrence: IT)
  Receive Date: 20140519
  Receipt Date: 20141119
  Transmission Date: 20150528
  Serious: Yes (Hospitalization)
  Sender: FDA-Public Use
  Company Number: IT-ABBVIE-14P-083-1238050-00

PATIENT
  Age: 15 Year
  Sex: Male
  Weight: 79 kg

DRUGS (1)
  1. CLARITHROMYCIN. [Suspect]
     Active Substance: CLARITHROMYCIN
     Indication: PNEUMONIA MYCOPLASMAL
     Route: 048
     Dates: start: 20140428, end: 20140429

REACTIONS (2)
  - Somnolence [Recovered/Resolved]
  - Speech disorder [Recovered/Resolved]

NARRATIVE: CASE EVENT DATE: 20140429
